FAERS Safety Report 4427683-4 (Version None)
Quarter: 2004Q3

REPORT INFORMATION
  Report Type: 
  Country: None (occurrence: None)
  Receive Date: 20040816
  Receipt Date: 20040816
  Transmission Date: 20050211
  Serious: No
  Sender: FDA-Public Use
  Company Number: None

PATIENT
  Age: 34 Year
  Sex: Female
  Weight: 49.8957 kg

DRUGS (1)
  1. SARAFEM [Suspect]
     Indication: PREMENSTRUAL SYNDROME
     Dosage: 30 MG DAILY ORAL
     Route: 048
     Dates: start: 20040510, end: 20040814

REACTIONS (11)
  - AGGRESSION [None]
  - DRUG WITHDRAWAL SYNDROME [None]
  - DYSURIA [None]
  - JAUNDICE [None]
  - MOOD SWINGS [None]
  - NEUROSIS [None]
  - NIGHTMARE [None]
  - PAIN [None]
  - SOCIAL AVOIDANT BEHAVIOUR [None]
  - SUICIDAL IDEATION [None]
  - URETHRITIS [None]
